FAERS Safety Report 12907651 (Version 1)
Quarter: 2016Q4

REPORT INFORMATION
  Report Type: Spontaneous
  Country: GB (occurrence: GB)
  Receive Date: 20161103
  Receipt Date: 20161103
  Transmission Date: 20170207
  Serious: Yes (Other)
  Sender: FDA-Public Use
  Company Number: GB-MYLANLABS-2016M1046337

PATIENT

DRUGS (3)
  1. PRAVASTATIN SODIUM. [Concomitant]
     Active Substance: PRAVASTATIN SODIUM
     Indication: PRODUCT USED FOR UNKNOWN INDICATION
     Dosage: 20 MG, UNK
     Route: 065
  2. ETODOLAC MYLAN [Suspect]
     Active Substance: ETODOLAC
     Indication: OSTEOARTHRITIS
     Dosage: 600 MG, QD
     Route: 048
     Dates: start: 2016
  3. FLUOXETINE [Concomitant]
     Active Substance: FLUOXETINE HYDROCHLORIDE
     Indication: PRODUCT USED FOR UNKNOWN INDICATION
     Dosage: 20 MG, QD
     Route: 065

REACTIONS (6)
  - Drug administration error [Not Recovered/Not Resolved]
  - White blood cell count decreased [Recovering/Resolving]
  - Photophobia [Not Recovered/Not Resolved]
  - Influenza [Recovering/Resolving]
  - Blood test abnormal [Recovering/Resolving]
  - Hepatic enzyme abnormal [Recovering/Resolving]

NARRATIVE: CASE EVENT DATE: 2016
